FAERS Safety Report 7147297-5 (Version None)
Quarter: 2010Q4

REPORT INFORMATION
  Report Type: 
  Country: None (occurrence: None)
  Receive Date: 20101209
  Receipt Date: 20070705
  Transmission Date: 20110411
  Serious: Yes (Death)
  Sender: FDA-Public Use
  Company Number: US-ACTELION-A-US2007-16929

PATIENT

DRUGS (15)
  1. ILOPROST INHALATION SOLUTION 5UG US [Suspect]
     Indication: PULMONARY HYPERTENSION
     Dosage: 5 UG, 6-9 X DAY
     Route: 055
     Dates: start: 20060213, end: 20070704
  2. SILDENAFIL [Concomitant]
     Indication: PULMONARY HYPERTENSION
  3. ALLOPURINOL [Concomitant]
  4. ACETAMINOPHEN [Concomitant]
  5. OXYGEN [Concomitant]
  6. SYNTHROID [Concomitant]
  7. ISOSORB [Concomitant]
  8. OMEPRAZOLE [Concomitant]
  9. ZETIA [Concomitant]
  10. LORAZEPAM [Concomitant]
  11. POTASSIUM CHLORIDE [Concomitant]
  12. AMIODARONE HYDROCHLORIDE [Concomitant]
  13. NITROGLYCERIN [Concomitant]
  14. TORSEMIDE [Concomitant]
  15. ASPIRIN [Concomitant]

REACTIONS (2)
  - DEATH [None]
  - DYSPNOEA [None]
